FAERS Safety Report 10562790 (Version 1)
Quarter: 2014Q4

REPORT INFORMATION
  Report Type: Spontaneous
  Country: US (occurrence: None)
  Receive Date: 20141103
  Receipt Date: 20141103
  Transmission Date: 20150529
  Serious: Yes (Other)
  Sender: FDA-Public Use
  Company Number: None

PATIENT
  Age: 58 Year
  Sex: Female
  Weight: 63.5 kg

DRUGS (1)
  1. SYNTHROID [Suspect]
     Active Substance: LEVOTHYROXINE SODIUM
     Indication: HYPOTHYROIDISM
     Dosage: 50MCG, 1.5 TABLETS DAILY BY MOUTH?AFTER A FEW DAYS OFF MEDS
     Route: 048
     Dates: start: 20141017, end: 20141023

REACTIONS (6)
  - Nervousness [None]
  - Product quality issue [None]
  - Muscle twitching [None]
  - Hypertension [None]
  - Mood altered [None]
  - Heart rate increased [None]

NARRATIVE: CASE EVENT DATE: 20141019
